FAERS Safety Report 15843507 (Version 2)
Quarter: 2019Q3

REPORT INFORMATION
  Report Type: Report from Study
  Country: None (occurrence: DE)
  Receive Date: 20190118
  Receipt Date: 20190802
  Transmission Date: 20191004
  Serious: Yes (Hospitalization)
  Sender: FDA-Public Use
  Company Number: DE-ABBVIE-19K-062-2624439-00

PATIENT
  Age: 59 Year
  Sex: Female

DRUGS (5)
  1. LEFLUNOMIDE. [Concomitant]
     Active Substance: LEFLUNOMIDE
     Indication: PRODUCT USED FOR UNKNOWN INDICATION
     Dates: start: 201102, end: 2012
  2. HUMIRA [Suspect]
     Active Substance: ADALIMUMAB
     Indication: RHEUMATIC DISORDER
     Route: 058
     Dates: start: 201110, end: 20181206
  3. HYRIMOZ [Concomitant]
     Active Substance: ADALIMUMAB-ADAZ
     Indication: PRODUCT USED FOR UNKNOWN INDICATION
     Dates: start: 20181206
  4. MTX [Concomitant]
     Active Substance: METHOTREXATE SODIUM
     Indication: PRODUCT USED FOR UNKNOWN INDICATION
     Dates: start: 201102, end: 2011
  5. MTX [Concomitant]
     Active Substance: METHOTREXATE SODIUM
     Dates: start: 2011

REACTIONS (4)
  - Tendon rupture [Recovered/Resolved]
  - Trigger finger [Recovered/Resolved]
  - Borrelia infection [Unknown]
  - Muscle rupture [Recovered/Resolved]

NARRATIVE: CASE EVENT DATE: 20180710
